FAERS Safety Report 17951172 (Version 1)
Quarter: 2020Q2

REPORT INFORMATION
  Report Type: Spontaneous
  Country: US (occurrence: US)
  Receive Date: 20200626
  Receipt Date: 20200626
  Transmission Date: 20200714
  Serious: No
  Sender: FDA-Public Use
  Company Number: US-BAYER-2020-125336

PATIENT

DRUGS (1)
  1. ALEVE [Suspect]
     Active Substance: NAPROXEN SODIUM
     Dosage: UNK

REACTIONS (7)
  - Eye swelling [Unknown]
  - Periorbital swelling [Unknown]
  - Feeling abnormal [Unknown]
  - Depressed mood [None]
  - Skin exfoliation [None]
  - Dysuria [Unknown]
  - Visual impairment [None]
